FAERS Safety Report 5656661-2 (Version None)
Quarter: 2008Q1

REPORT INFORMATION
  Report Type: 
  Country: None (occurrence: None)
  Receive Date: 20080306
  Receipt Date: 20080306
  Transmission Date: 20080703
  Serious: No
  Sender: FDA-Public Use
  Company Number: None

PATIENT
  Age: 55 Year
  Sex: Male
  Weight: 81.6475 kg

DRUGS (6)
  1. ALOXI [Suspect]
     Indication: PREMEDICATION
     Dosage: 0.25MG X1 IV BOLUS
     Route: 040
     Dates: start: 20080213, end: 20080305
  2. EMEND [Suspect]
     Indication: PREMEDICATION
     Dosage: 115MG X1 IV DRIP
     Route: 041
     Dates: start: 20080305, end: 20080305
  3. DEXAMETHASONE TAB [Concomitant]
  4. RANITIDINE [Concomitant]
  5. DIPHENHYDRAMINE HCL [Concomitant]
  6. ACETAMINOPHEN [Concomitant]

REACTIONS (4)
  - ANXIETY [None]
  - DIZZINESS [None]
  - HEADACHE [None]
  - HYPOAESTHESIA [None]
